FAERS Safety Report 7421995-8 (Version None)
Quarter: 2011Q2

REPORT INFORMATION
  Report Type: 
  Country: None (occurrence: None)
  Receive Date: 20110418
  Receipt Date: 20110405
  Transmission Date: 20111010
  Serious: Yes (Disabling, Other)
  Sender: FDA-Public Use
  Company Number: US-ELI_LILLY_AND_COMPANY-US201104001931

PATIENT
  Sex: Female

DRUGS (1)
  1. FORTEO [Suspect]
     Indication: OSTEOPOROSIS
     Dosage: 20 UG, QD
     Dates: start: 20100803

REACTIONS (5)
  - BLINDNESS [None]
  - VISUAL ACUITY REDUCED [None]
  - BLOOD POTASSIUM DECREASED [None]
  - MACULAR DEGENERATION [None]
  - MUSCLE SPASMS [None]
